FAERS Safety Report 17742550 (Version 1)
Quarter: 2020Q2

REPORT INFORMATION
  Report Type: Spontaneous
  Country: US (occurrence: US)
  Receive Date: 20200505
  Receipt Date: 20200505
  Transmission Date: 20200714
  Serious: Yes (Other)
  Sender: FDA-Public Use
  Company Number: US-BION-008606

PATIENT
  Age: 93 Year
  Sex: Female

DRUGS (1)
  1. BIONPHARMA^S DOFETILIDE UNKNOWN [Suspect]
     Active Substance: DOFETILIDE
     Indication: ATRIAL FIBRILLATION
     Dosage: BID
     Route: 048

REACTIONS (2)
  - Atrial fibrillation [Not Recovered/Not Resolved]
  - Product substitution issue [Unknown]

NARRATIVE: CASE EVENT DATE: 201912
